FAERS Safety Report 5081340-2 (Version None)
Quarter: 2006Q3

REPORT INFORMATION
  Report Type: 
  Country: None (occurrence: None)
  Receive Date: 20060811
  Receipt Date: 20060623
  Transmission Date: 20061208
  Serious: Yes (Hospitalization)
  Sender: FDA-Public Use
  Company Number: 226132

PATIENT
  Age: 65 Year
  Sex: Female
  Weight: 79.7 kg

DRUGS (8)
  1. ERLOTINIB (ERLOTINIB) TABLET [Suspect]
     Indication: NON-SMALL CELL LUNG CANCER
     Dosage: 15 MG/KG, Q2W, ORAL
     Route: 048
     Dates: start: 20060405
  2. AVASTIN [Suspect]
     Indication: NON-SMALL CELL LUNG CANCER
     Dosage: 150 MG, QD, ORAL
     Route: 048
     Dates: start: 20060517
  3. CIPROFLOXACIN [Concomitant]
  4. HYDROCHLOROTHIAZIDE/IRBESARTAN (HYDROCHLOROTHIAZIDE, IRBESARTAN) [Concomitant]
  5. MEDICATION (UNK INGREDIENT) (GENERIC COMPONENT(S) NOT KNOWN) [Concomitant]
  6. MYLANTA (ALUMINUM HYDROXIDE, MAGNESIUM HYDROXIDE, SIMETHICONE) [Concomitant]
  7. PRILOSEC [Concomitant]
  8. IBUPROFEN [Concomitant]

REACTIONS (6)
  - BACK PAIN [None]
  - BACTERIAL INFECTION [None]
  - CULTURE URINE POSITIVE [None]
  - PYREXIA [None]
  - RENAL COLIC [None]
  - URINARY TRACT INFECTION [None]
